FAERS Safety Report 12697984 (Version 1)
Quarter: 2016Q3

REPORT INFORMATION
  Report Type: Spontaneous
  Country: US (occurrence: None)
  Receive Date: 20160829
  Receipt Date: 20160829
  Transmission Date: 20161109
  Serious: No
  Sender: FDA-Public Use
  Company Number: None

PATIENT
  Age: 61 Year
  Sex: Female

DRUGS (11)
  1. VITAMIN D3 [Concomitant]
     Active Substance: CHOLECALCIFEROL
  2. GILENYA [Suspect]
     Active Substance: FINGOLIMOD HYDROCHLORIDE
     Indication: MULTIPLE SCLEROSIS
     Route: 048
     Dates: start: 20150415
  3. DILANTIN [Concomitant]
     Active Substance: PHENYTOIN
  4. CENTRAL VITE [Concomitant]
  5. FLUOXETINE [Concomitant]
     Active Substance: FLUOXETINE HYDROCHLORIDE
  6. MULTI VIT/FL [Concomitant]
  7. CLONAZEPAM. [Concomitant]
     Active Substance: CLONAZEPAM
  8. VESICARE [Concomitant]
     Active Substance: SOLIFENACIN SUCCINATE
  9. BACLOFEN. [Concomitant]
     Active Substance: BACLOFEN
  10. VITAMIN B COMPLEX [Concomitant]
     Active Substance: CYANOCOBALAMIN\DEXPANTHENOL\NIACINAMIDE\PYRIDOXINE HYDROCHLORIDE\RIBOFLAVIN 5^-PHOSPHATE SODIUM\THIAMINE HYDROCHLORIDE\VITAMIN B COMPLEX
  11. LYRICA [Concomitant]
     Active Substance: PREGABALIN

REACTIONS (1)
  - Fall [None]

NARRATIVE: CASE EVENT DATE: 20160808
